FAERS Safety Report 20213732 (Version 1)
Quarter: 2021Q4

REPORT INFORMATION
  Report Type: Spontaneous
  Country: DK (occurrence: DK)
  Receive Date: 20211221
  Receipt Date: 20211221
  Transmission Date: 20220303
  Serious: Yes (Death)
  Sender: FDA-Public Use
  Company Number: DK-ENDO PHARMACEUTICALS INC-2021-013613

PATIENT
  Sex: Male

DRUGS (4)
  1. AVEED [Suspect]
     Active Substance: TESTOSTERONE UNDECANOATE
     Indication: Androgen deficiency
     Dosage: 1000 MG, SINGLE (FIRST INJECTION)
     Route: 030
  2. AVEED [Suspect]
     Active Substance: TESTOSTERONE UNDECANOATE
     Dosage: 1000 MG, SINGLE (SECOND INJECTION SIX WEEKS AFTER FIRST INJECTION)
     Route: 030
  3. AVEED [Suspect]
     Active Substance: TESTOSTERONE UNDECANOATE
     Dosage: 1000 MG, SINGLE (THIRD INJECTION 18 WEEKS AFTER FIRST INJECTION)
     Route: 030
  4. AVEED [Suspect]
     Active Substance: TESTOSTERONE UNDECANOATE
     Dosage: 1000 MG, PRN (AFTER RESULTS OF BLOOD TESTS AND CLINICAL EVALUATION)
     Route: 030

REACTIONS (1)
  - Cardiovascular disorder [Fatal]
